FAERS Safety Report 9281665 (Version 1)
Quarter: 2013Q2

REPORT INFORMATION
  Report Type: Spontaneous
  Country: US (occurrence: US)
  Receive Date: 20130509
  Receipt Date: 20130509
  Transmission Date: 20140414
  Serious: No
  Sender: FDA-Public Use
  Company Number: US-009507513-1305USA003082

PATIENT
  Sex: Female

DRUGS (1)
  1. AZASITE [Suspect]
     Indication: CONJUNCTIVITIS BACTERIAL
     Dosage: ONE DROP IN EACH EYE TWICE A DAY FOR 2 DAYS THEN 1 DROP IN EACH EYE ONCE A DAY FOR 5 DAYS
     Route: 047
     Dates: start: 20130505

REACTIONS (3)
  - Drug dose omission [Unknown]
  - Product quality issue [Unknown]
  - No adverse event [Unknown]
